FAERS Safety Report 5475913-2 (Version None)
Quarter: 2007Q4

REPORT INFORMATION
  Report Type: 
  Country: None (occurrence: None)
  Receive Date: 20071003
  Receipt Date: 20070926
  Transmission Date: 20080405
  Serious: Yes (Other)
  Sender: FDA-Public Use
  Company Number: HQWYE335826SEP07

PATIENT
  Age: 73 Year
  Sex: Female

DRUGS (11)
  1. AMIODARONE [Suspect]
     Dates: start: 20060517
  2. GEMFIBROZIL [Concomitant]
     Route: 048
     Dates: start: 20040416, end: 20060316
  3. GLYBURIDE [Concomitant]
     Route: 048
  4. METFORMIN HCL [Concomitant]
     Route: 048
  5. ASPIRIN [Concomitant]
     Route: 048
  6. LISINOPRIL [Concomitant]
     Route: 048
  7. METOPROLOL [Concomitant]
     Route: 048
  8. FUROSEMIDE [Concomitant]
     Route: 048
  9. ALENDRONATE SODIUM [Concomitant]
     Route: 048
  10. ROSUVASTATIN [Interacting]
     Indication: CORONARY ARTERY DISEASE
     Dates: start: 20060209, end: 20060531
  11. LEVOTHYROXINE SODIUM [Concomitant]
     Route: 048

REACTIONS (2)
  - DRUG INTERACTION [None]
  - TRANSAMINASES INCREASED [None]
